FAERS Safety Report 8844870 (Version 1)
Quarter: 2012Q4

REPORT INFORMATION
  Report Type: 
  Country: US (occurrence: US)
  Receive Date: 20121017
  Receipt Date: 20121017
  Transmission Date: 20130627
  Serious: Yes (Other)
  Sender: FDA-Public Use
  Company Number: US-ELI_LILLY_AND_COMPANY-US201210002031

PATIENT
  Sex: Female

DRUGS (8)
  1. CYMBALTA [Suspect]
     Indication: DEPRESSION
     Dosage: 60 mg, qd
  2. CYMBALTA [Suspect]
     Dosage: 60 mg, every 2 to 3 days
  3. GABAPENTIN [Concomitant]
  4. ACIPHEX [Concomitant]
  5. OXYCODONE [Concomitant]
  6. LEVOTHYROXINE [Concomitant]
  7. HYDROCHLOROTHIAZIDE [Concomitant]
  8. AROMASIN [Concomitant]

REACTIONS (4)
  - Breast cancer [Unknown]
  - Dizziness [Unknown]
  - Intentional drug misuse [Unknown]
  - Drug withdrawal syndrome [Not Recovered/Not Resolved]
